FAERS Safety Report 18852581 (Version 1)
Quarter: 2021Q1

REPORT INFORMATION
  Report Type: Spontaneous
  Country: US (occurrence: US)
  Receive Date: 20210205
  Receipt Date: 20210205
  Transmission Date: 20210420
  Serious: Yes (Hospitalization, Other)
  Sender: FDA-Public Use
  Company Number: None

PATIENT
  Age: 56 Year
  Sex: Male
  Weight: 105.7 kg

DRUGS (3)
  1. BARICITINIB. [Suspect]
     Active Substance: BARICITINIB
     Indication: COVID-19
     Route: 048
     Dates: start: 20210124, end: 20210130
  2. DECADRON [Concomitant]
     Active Substance: DEXAMETHASONE
     Dates: start: 20210122, end: 20210130
  3. REMDESIVIR. [Concomitant]
     Active Substance: REMDESIVIR
     Dates: start: 20210122, end: 20210126

REACTIONS (3)
  - Pulmonary embolism [None]
  - Respiratory disorder [None]
  - Condition aggravated [None]

NARRATIVE: CASE EVENT DATE: 20210126
